FAERS Safety Report 4647583-4 (Version None)
Quarter: 2005Q2

REPORT INFORMATION
  Report Type: 
  Country: None (occurrence: None)
  Receive Date: 20050426
  Receipt Date: 20050413
  Transmission Date: 20051028
  Serious: Yes (Death)
  Sender: FDA-Public Use
  Company Number: HQWYE022614APR05

PATIENT
  Age: 74 Year
  Sex: Male

DRUGS (3)
  1. TAZOCIN (PIPERACILLIN/TAZOBACTAM, INJECTION) [Suspect]
     Indication: ESCHERICHIA INFECTION
     Dosage: 4.5 GRAMS INTRAVENOUS
     Route: 042
     Dates: start: 20050331, end: 20050404
  2. TAZOCIN (PIPERACILLIN/TAZOBACTAM, INJECTION) [Suspect]
     Indication: URINARY TRACT INFECTION
     Dosage: 4.5 GRAMS INTRAVENOUS
     Route: 042
     Dates: start: 20050331, end: 20050404
  3. CIPRO [Concomitant]

REACTIONS (3)
  - CONCOMITANT DISEASE PROGRESSION [None]
  - SEPSIS [None]
  - TOXIC EPIDERMAL NECROLYSIS [None]
